FAERS Safety Report 8450487-2 (Version None)
Quarter: 2012Q2

REPORT INFORMATION
  Report Type: 
  Country: None (occurrence: None)
  Receive Date: 20120620
  Receipt Date: 20120612
  Transmission Date: 20120825
  Serious: Yes (Other)
  Sender: FDA-Public Use
  Company Number: MX-SANOFI-AVENTIS-2012SA042279

PATIENT
  Age: 76 Year
  Sex: Male
  Weight: 90 kg

DRUGS (4)
  1. METFORMIN HCL [Concomitant]
     Indication: TYPE 2 DIABETES MELLITUS
     Dosage: 1 TABLET IN THE MORNING AND 1 TABLET IN THE EVENING; STRENGTH: 850 MG
     Route: 048
  2. GLIMEPIRIDE [Suspect]
     Indication: TYPE 2 DIABETES MELLITUS
     Route: 048
     Dates: start: 20090101
  3. JANUVIA [Concomitant]
     Indication: TYPE 2 DIABETES MELLITUS
     Route: 048
  4. ATACAND [Concomitant]
     Route: 048

REACTIONS (5)
  - PARAESTHESIA [None]
  - VENOUS OCCLUSION [None]
  - HYPERGLYCAEMIA [None]
  - MUSCLE RUPTURE [None]
  - VARICOSE VEIN [None]
